FAERS Safety Report 17011757 (Version 3)
Quarter: 2019Q4

REPORT INFORMATION
  Report Type: Other
  Country: US (occurrence: US)
  Receive Date: 20191108
  Receipt Date: 20191231
  Transmission Date: 20200122
  Serious: Yes (Hospitalization)
  Sender: FDA-Public Use
  Company Number: US-AMAG PHARMACEUTICALS, INC.-AMAG201905744

PATIENT
  Age: 37 Year
  Sex: Female

DRUGS (3)
  1. UROCIT K [Concomitant]
     Indication: RENAL TUBULAR ACIDOSIS
  2. MAKENA [Suspect]
     Active Substance: HYDROXYPROGESTERONE CAPROATE
     Indication: PREMATURE DELIVERY
     Route: 058
     Dates: start: 20190906
  3. POTASSIUM CITRATE. [Concomitant]
     Active Substance: POTASSIUM CITRATE
     Indication: RENAL TUBULAR ACIDOSIS

REACTIONS (6)
  - Injection site pain [Not Recovered/Not Resolved]
  - Pelvic pain [Unknown]
  - Injection site mass [Not Recovered/Not Resolved]
  - Product administration error [Unknown]
  - Uterine contractions during pregnancy [Recovered/Resolved]
  - Bacterial vaginosis [Unknown]

NARRATIVE: CASE EVENT DATE: 2019
